FAERS Safety Report 18683464 (Version 1)
Quarter: 2020Q4

REPORT INFORMATION
  Report Type: Spontaneous
  Country: IT (occurrence: IT)
  Receive Date: 20201230
  Receipt Date: 20201230
  Transmission Date: 20210114
  Serious: Yes (Hospitalization)
  Sender: FDA-Public Use
  Company Number: NVSC2020IT335818

PATIENT
  Age: 54 Year
  Sex: Male

DRUGS (4)
  1. EFEXOR [Concomitant]
     Active Substance: VENLAFAXINE HYDROCHLORIDE
     Indication: BIPOLAR DISORDER
     Dosage: 1 DF, QD
     Route: 048
  2. ZOLPIDEM TARTRATE. [Suspect]
     Active Substance: ZOLPIDEM TARTRATE
     Indication: DRUG ABUSE
     Dosage: 30 MG
     Route: 048
     Dates: start: 20190607, end: 20190607
  3. BROTIZOLAM [Suspect]
     Active Substance: BROTIZOLAM
     Indication: DRUG ABUSE
     Dosage: 1 MG
     Route: 048
     Dates: start: 20190607, end: 20190607
  4. DEPAKIN CHRONO [Concomitant]
     Active Substance: VALPROIC ACID
     Indication: BIPOLAR DISORDER
     Dosage: 1 DF,QD
     Route: 048

REACTIONS (6)
  - Bradyphrenia [Recovering/Resolving]
  - Vomiting [Recovering/Resolving]
  - Drug abuse [Recovering/Resolving]
  - Nausea [Recovering/Resolving]
  - Self-injurious ideation [Recovering/Resolving]
  - Sopor [Recovering/Resolving]

NARRATIVE: CASE EVENT DATE: 20190607
